FAERS Safety Report 4743819-X (Version None)
Quarter: 2005Q3

REPORT INFORMATION
  Report Type: 
  Country: None (occurrence: None)
  Receive Date: 20050809
  Receipt Date: 20050728
  Transmission Date: 20060218
  Serious: Yes (Hospitalization)
  Sender: FDA-Public Use
  Company Number: 2005108197

PATIENT
  Age: 43 Year
  Sex: Male

DRUGS (4)
  1. FELDENE [Suspect]
     Indication: ILL-DEFINED DISORDER
     Dosage: INTRA-ARTERIAL
     Route: 013
     Dates: start: 20050624, end: 20050624
  2. DICLOFENAC SODIUM [Suspect]
     Indication: ILL-DEFINED DISORDER
     Dosage: 2 DOSE FORMS (TWICE DAILY), TOPICAL
     Route: 061
     Dates: start: 20050601, end: 20050620
  3. PROCAINE (PROCAINE) [Suspect]
     Indication: ILL-DEFINED DISORDER
     Dosage: INTRA-ARTERIAL
     Route: 013
     Dates: start: 20050624, end: 20050624
  4. COLTRAMYL (THIOCOLCHICOSIDE) [Suspect]
     Indication: ILL-DEFINED DISORDER
     Dosage: INTRA-ARTERIAL
     Route: 013
     Dates: start: 20050624, end: 20050624

REACTIONS (2)
  - ECZEMA [None]
  - PURPURA [None]
